FAERS Safety Report 22023341 (Version 2)
Quarter: 2023Q1

REPORT INFORMATION
  Report Type: Spontaneous
  Country: US (occurrence: US)
  Receive Date: 20230223
  Receipt Date: 20230314
  Transmission Date: 20230418
  Serious: No
  Sender: FDA-Public Use
  Company Number: US-ELI_LILLY_AND_COMPANY-US202302007452

PATIENT
  Age: 46 Year
  Sex: Male

DRUGS (7)
  1. ERBITUX [Suspect]
     Active Substance: CETUXIMAB
     Indication: Colorectal cancer stage IV
     Dosage: 1000 MG, UNKNOWN
     Route: 042
     Dates: start: 20230118
  2. LEUCOVORIN [Concomitant]
     Active Substance: LEUCOVORIN
     Indication: Colorectal cancer
     Dosage: 600 MG
     Route: 065
     Dates: start: 20221021
  3. FLUOR-URACIL [FLUOROURACIL] [Concomitant]
     Indication: Colorectal cancer
     Dosage: 600 MG
     Route: 042
     Dates: start: 20221021
  4. FLUOR-URACIL [FLUOROURACIL] [Concomitant]
     Dosage: 3500 MG
     Dates: start: 20221021
  5. IRINOTECAN [Concomitant]
     Active Substance: IRINOTECAN
     Indication: Colorectal cancer
     Dosage: 280 MG
     Dates: start: 20221021
  6. SOLIRIS [Concomitant]
     Active Substance: ECULIZUMAB
     Indication: Atypical haemolytic uraemic syndrome
     Dosage: 1200 MG
  7. AB CLINDAMYCIN [Concomitant]
     Indication: Product used for unknown indication
     Dosage: 2.5 UNK

REACTIONS (3)
  - Haemorrhage [Not Recovered/Not Resolved]
  - Rash pruritic [Not Recovered/Not Resolved]
  - Rash [Not Recovered/Not Resolved]

NARRATIVE: CASE EVENT DATE: 20230119
